FAERS Safety Report 17891153 (Version 1)
Quarter: 2020Q2

REPORT INFORMATION
  Report Type: Report from Study
  Country: DO (occurrence: DO)
  Receive Date: 20200612
  Receipt Date: 20200612
  Transmission Date: 20200714
  Serious: Yes (Disabling)
  Sender: FDA-Public Use
  Company Number: NVSC2020DO164291

PATIENT
  Age: 76 Year
  Sex: Female

DRUGS (1)
  1. EXELON [Suspect]
     Active Substance: RIVASTIGMINE TARTRATE
     Indication: PRODUCT USED FOR UNKNOWN INDICATION
     Dosage: 18 MG, QD, (9.5 MG QD PATCH 10 (CM2), 18 MG RIVASTIGMINE BASE)
     Route: 065
     Dates: start: 2020

REACTIONS (2)
  - Memory impairment [Unknown]
  - Mental disorder [Unknown]
